FAERS Safety Report 10958096 (Version 1)
Quarter: 2015Q1

REPORT INFORMATION
  Report Type: Report from Study
  Country: FR (occurrence: FR)
  Receive Date: 20150326
  Receipt Date: 20150326
  Transmission Date: 20150721
  Serious: Yes (Death, Hospitalization)
  Sender: FDA-Public Use
  Company Number: FR-MYLANLABS-2015M1009677

PATIENT

DRUGS (2)
  1. STRONTIUM RANELATE [Suspect]
     Active Substance: STRONTIUM RANELATE
     Route: 065
  2. OXACILLIN [Suspect]
     Active Substance: OXACILLIN SODIUM
     Route: 065

REACTIONS (5)
  - Sepsis [Fatal]
  - Subcutaneous abscess [Fatal]
  - Acute kidney injury [Fatal]
  - Osteitis [Fatal]
  - Drug reaction with eosinophilia and systemic symptoms [Fatal]
